FAERS Safety Report 7410847-5 (Version None)
Quarter: 2011Q2

REPORT INFORMATION
  Report Type: 
  Country: None (occurrence: None)
  Receive Date: 20110413
  Receipt Date: 20110408
  Transmission Date: 20111010
  Serious: No
  Sender: FDA-Public Use
  Company Number: US-PFIZER INC-2007052438

PATIENT
  Sex: Female
  Weight: 56.236 kg

DRUGS (9)
  1. VITAMIN B6 [Concomitant]
  2. ACETAMINOPHEN [Concomitant]
  3. MULTI-VITAMINS [Concomitant]
     Dosage: UNK
  4. LIPITOR [Suspect]
     Dosage: 40 MG, DAILY
     Route: 048
  5. ACETYLSALICYLIC ACID [Concomitant]
     Dosage: UNK
  6. CALCIUM [Concomitant]
  7. VITAMIN D [Concomitant]
     Dosage: UNK
  8. VITAMINS [Concomitant]
  9. LIPITOR [Suspect]
     Indication: BLOOD CHOLESTEROL INCREASED
     Dosage: 10 MG, 1X/DAY
     Route: 048

REACTIONS (4)
  - MUSCULAR WEAKNESS [None]
  - TREMOR [None]
  - PAIN IN EXTREMITY [None]
  - FATIGUE [None]
